FAERS Safety Report 9394841 (Version 1)
Quarter: 2013Q3

REPORT INFORMATION
  Report Type: Report from Study
  Country: TR (occurrence: TR)
  Receive Date: 20130711
  Receipt Date: 20130711
  Transmission Date: 20140515
  Serious: Yes (Hospitalization, Other)
  Sender: FDA-Public Use
  Company Number: TR-PFIZER INC-2013201176

PATIENT
  Age: 16 Year
  Sex: Female

DRUGS (2)
  1. FLUCONAZOLE [Suspect]
     Dosage: 8 MG/KG
  2. VERAPAMIL [Suspect]
     Dosage: UNK

REACTIONS (5)
  - Suicide attempt [Unknown]
  - Toxicity to various agents [Recovered/Resolved]
  - Electrocardiogram QT prolonged [Recovered/Resolved]
  - Hypotension [Recovered/Resolved]
  - Atrioventricular block [Recovered/Resolved]
